FAERS Safety Report 4853868-9 (Version None)
Quarter: 2005Q4

REPORT INFORMATION
  Report Type: 
  Country: None (occurrence: None)
  Receive Date: 20051213
  Receipt Date: 20051130
  Transmission Date: 20060501
  Serious: Yes (Death)
  Sender: FDA-Public Use
  Company Number: USA-2005-0020653

PATIENT
  Age: 49 Year
  Sex: Male
  Weight: 108.8 kg

DRUGS (12)
  1. OXYCONTIN [Suspect]
     Indication: PAIN
     Dosage: 100 MG, Q12H,
     Dates: start: 20020501
  2. DIAZEPAM [Suspect]
  3. PROPOXYPHENE HCL [Suspect]
  4. DIPHENHYDRAMINE HCL [Suspect]
  5. CITALOPRAM (CITALOPRAM) [Suspect]
  6. AMITRIPTYLINE (AMITRIPTYLINE) [Suspect]
  7. LIDOCAINE [Suspect]
  8. NICOTINE [Suspect]
  9. CAFFEINE (CAFFEINE) [Suspect]
  10. DARVOCET-N (DEXTROPROPOXYPHENE NAPSILATE) [Concomitant]
  11. LEXAPRO [Concomitant]
  12. REMERON [Concomitant]

REACTIONS (20)
  - BRONCHITIS ACUTE [None]
  - BRONCHOPNEUMONIA [None]
  - CARDIAC FAILURE CONGESTIVE [None]
  - CARDIOMEGALY [None]
  - CHRONIC OBSTRUCTIVE PULMONARY DISEASE [None]
  - GASTRIC VARICES [None]
  - HEPATIC STEATOSIS [None]
  - HEPATITIS [None]
  - HEPATOSPLENOMEGALY [None]
  - INCISIONAL HERNIA REPAIR [None]
  - MELAENA [None]
  - MULTIPLE DRUG OVERDOSE ACCIDENTAL [None]
  - MYOCARDIAL FIBROSIS [None]
  - OEDEMA PERIPHERAL [None]
  - PERICARDIAL EFFUSION [None]
  - PERITONEAL EFFUSION [None]
  - PLEURAL EFFUSION [None]
  - PULMONARY OEDEMA [None]
  - SOMNOLENCE [None]
  - VARICES OESOPHAGEAL [None]
